FAERS Safety Report 8108174-6 (Version None)
Quarter: 2011Q4

REPORT INFORMATION
  Report Type: 
  Country: None (occurrence: None)
  Receive Date: 20111227
  Receipt Date: 20111010
  Transmission Date: 20120403
  Serious: Yes (Other)
  Sender: FDA-Public Use
  Company Number: PHEH2011US06473

PATIENT

DRUGS (1)
  1. GILENYA [Suspect]
     Dosage: ORAL
     Route: 048

REACTIONS (1)
  - HERPES ZOSTER [None]
